FAERS Safety Report 6924251-7 (Version None)
Quarter: 2010Q3

REPORT INFORMATION
  Report Type: 
  Country: None (occurrence: None)
  Receive Date: 20100811
  Receipt Date: 20100811
  Transmission Date: 20110219
  Serious: Yes (Hospitalization)
  Sender: FDA-Public Use
  Company Number: None

PATIENT
  Age: 61 Year
  Sex: Male

DRUGS (1)
  1. MORPHINE [Suspect]
     Dosage: 1500 BIG PO
     Route: 048
     Dates: start: 20100623, end: 20100625

REACTIONS (4)
  - HYPOVENTILATION [None]
  - HYPOXIA [None]
  - RESPIRATORY ARREST [None]
  - SOMNOLENCE [None]
